FAERS Safety Report 8513777-0 (Version None)
Quarter: 2012Q3

REPORT INFORMATION
  Report Type: 
  Country: None (occurrence: None)
  Receive Date: 20120705
  Receipt Date: 20120626
  Transmission Date: 20120928
  Serious: Yes (Hospitalization)
  Sender: FDA-Public Use
  Company Number: 120273

PATIENT
  Age: 45 Year
  Sex: Female
  Weight: 54.4316 kg

DRUGS (2)
  1. SUPREP BOWEL PREP KIT [Suspect]
     Indication: COLONOSCOPY
     Dosage: 1 X 6OZ BOTTLE, 1X, PO
     Route: 048
     Dates: start: 20120626
  2. PROTONIX [Concomitant]

REACTIONS (6)
  - LOCAL SWELLING [None]
  - PHARYNGEAL OEDEMA [None]
  - BLOOD POTASSIUM DECREASED [None]
  - BLOOD SODIUM DECREASED [None]
  - NERVOUSNESS [None]
  - OEDEMA PERIPHERAL [None]
